FAERS Safety Report 9992533 (Version 1)
Quarter: 2014Q1

REPORT INFORMATION
  Report Type: Spontaneous
  Country: ES (occurrence: ES)
  Receive Date: 20140310
  Receipt Date: 20140310
  Transmission Date: 20141002
  Serious: Yes (Other)
  Sender: FDA-Public Use
  Company Number: ES-WATSON-2014-03770

PATIENT
  Age: 66 Year
  Sex: Male

DRUGS (3)
  1. TRIMETHOPRIM-SULFAMETHOXAZOLE (UNKNOWN) [Suspect]
     Indication: ANTIBIOTIC PROPHYLAXIS
     Dosage: 800/160 MG THREE TIMES PER WEEK
     Dates: end: 201001
  2. CALCIUM [Suspect]
     Indication: PRODUCT USED FOR UNKNOWN INDICATION
     Dosage: UNK
     Route: 065
     Dates: end: 201001
  3. MYCOPHENOLATE MOFETIL [Concomitant]
     Indication: POLYARTERITIS NODOSA
     Dosage: 1000 MG, BID
     Route: 065
     Dates: start: 200909

REACTIONS (1)
  - Gastrooesophageal reflux disease [Unknown]
